FAERS Safety Report 5744101-4 (Version None)
Quarter: 2008Q2

REPORT INFORMATION
  Report Type: 
  Country: None (occurrence: None)
  Receive Date: 20080520
  Receipt Date: 20080509
  Transmission Date: 20081010
  Serious: Yes (Other)
  Sender: FDA-Public Use
  Company Number: B0317710A

PATIENT
  Age: 58 Year
  Sex: Female

DRUGS (7)
  1. ROSIGLITAZONE [Suspect]
     Dosage: 2MG PER DAY
     Route: 048
  2. GLYBURIDE [Concomitant]
     Dosage: 10MG PER DAY
  3. METFORMIN HCL [Concomitant]
     Dosage: 1500MG PER DAY
  4. ENALAPRIL MALEATE [Concomitant]
     Dosage: 10MG PER DAY
  5. AMLODIPINE [Concomitant]
     Dosage: 5MG PER DAY
  6. ASPIRIN [Concomitant]
  7. VITAMIN E [Concomitant]

REACTIONS (6)
  - ACCELERATED HYPERTENSION [None]
  - DIZZINESS [None]
  - FATIGUE [None]
  - HEADACHE [None]
  - NECK PAIN [None]
  - RESTLESSNESS [None]
